FAERS Safety Report 6465146-5 (Version None)
Quarter: 2009Q4

REPORT INFORMATION
  Report Type: 
  Country: None (occurrence: None)
  Receive Date: 20091201
  Receipt Date: 20091120
  Transmission Date: 20100525
  Serious: Yes (Other)
  Sender: FDA-Public Use
  Company Number: RU-GENENTECH-293787

PATIENT
  Sex: Male
  Weight: 58 kg

DRUGS (2)
  1. MABTHERA [Suspect]
     Indication: RHEUMATOID ARTHRITIS
     Dosage: 1000 MG, Q14D
     Route: 042
     Dates: start: 20071024, end: 20080915
  2. METHYLPREDNISOLONE [Concomitant]
     Indication: RHEUMATOID ARTHRITIS
     Dosage: 3 MG, QD
     Route: 048
     Dates: start: 20080724

REACTIONS (5)
  - ATRIAL FIBRILLATION [None]
  - GASTROINTESTINAL DISORDER [None]
  - GASTROOESOPHAGEAL REFLUX DISEASE [None]
  - OESOPHAGITIS [None]
  - PANCREATITIS CHRONIC [None]
